FAERS Safety Report 23990722 (Version 2)
Quarter: 2024Q3

REPORT INFORMATION
  Report Type: Spontaneous
  Country: US (occurrence: US)
  Receive Date: 20240619
  Receipt Date: 20240913
  Transmission Date: 20241016
  Serious: Yes (Life-Threatening, Hospitalization, Other)
  Sender: BRISTOL MYERS SQUIBB
  Company Number: US-BRISTOL-MYERS SQUIBB COMPANY-2024-096149

PATIENT
  Age: 75 Year
  Sex: Female

DRUGS (3)
  1. OPDIVO [Suspect]
     Active Substance: NIVOLUMAB
     Indication: Malignant melanoma
     Dates: start: 202101, end: 202108
  2. NOVOLOG [Concomitant]
     Active Substance: INSULIN ASPART
     Indication: Diabetes mellitus
  3. LANTUS [Concomitant]
     Active Substance: INSULIN GLARGINE
     Indication: Diabetes mellitus

REACTIONS (15)
  - Asthenia [Unknown]
  - Syncope [Unknown]
  - Blood pressure abnormal [Unknown]
  - Renal failure [Unknown]
  - Ketoacidosis [Unknown]
  - Salivary hyposecretion [Unknown]
  - Confusional state [Unknown]
  - Adrenal insufficiency [Unknown]
  - Peripheral swelling [Unknown]
  - Arthralgia [Unknown]
  - Joint stiffness [Unknown]
  - Arthritis [Unknown]
  - Visual impairment [Unknown]
  - Hypoacusis [Unknown]
  - Diabetes mellitus [Unknown]

NARRATIVE: CASE EVENT DATE: 20210701
